FAERS Safety Report 8575202-3 (Version None)
Quarter: 2012Q3

REPORT INFORMATION
  Report Type: 
  Country: None (occurrence: None)
  Receive Date: 20120807
  Receipt Date: 20120802
  Transmission Date: 20120928
  Serious: Yes (Other)
  Sender: FDA-Public Use
  Company Number: US-BAYER-201030290NA

PATIENT
  Sex: Male
  Weight: 80 kg

DRUGS (31)
  1. NORVASC [Concomitant]
     Dosage: 10 MG, QD
  2. LABETALOL HCL [Concomitant]
     Dosage: 200 MG, BID
  3. ACCUPRIL [Concomitant]
     Dosage: 40 MG, QD
  4. NIFEDIPINE [Concomitant]
  5. SENSIPAR [Concomitant]
     Dosage: 60 MG, QD
  6. LISINOPRIL [Concomitant]
     Dosage: 40 MG, BID
  7. DICYCLOMINE [Concomitant]
     Dosage: 20 MG, BID
  8. NITROPRUSSIDE SODIUM [Concomitant]
  9. MAGNEVIST [Suspect]
  10. GADOLINIUM IN UNSPECIFIED DRUG [Suspect]
     Indication: NUCLEAR MAGNETIC RESONANCE IMAGING
     Dosage: UNK UNK, ONCE
     Route: 042
     Dates: start: 20050606, end: 20050606
  11. EPOETIN NOS [Concomitant]
  12. CARVEDILOL [Concomitant]
     Dosage: 25 MG, BID
  13. HYOSCYAMINE SULFATE [Concomitant]
     Dosage: 0.125 MG, Q4HR
  14. EPOGEN [Concomitant]
     Dosage: 10000 IU, UNK
  15. PHENYTOIN [Concomitant]
     Dosage: 100 MG, UNK
  16. MINOXIDIL [Concomitant]
     Dosage: 5 MG, BID
  17. SUCRALFATE [Concomitant]
     Dosage: 1 PILL BEFORE MEALS
  18. LOSARTAN POTASSIUM [Concomitant]
     Dosage: 100 MG, QD
  19. CLONIDINE [Concomitant]
     Dosage: 0.2 MG, UNK
  20. LOPRESSOR [Concomitant]
     Dosage: 50 MG, QD
     Route: 048
  21. GADOLINIUM IN UNSPECIFIED DRUG [Suspect]
     Indication: PANCREATIC MASS
  22. PHOSLO [Concomitant]
     Dosage: 667 MG, TID WITH MEALS
  23. PROCARDIA XL [Concomitant]
     Dosage: 60 MG, QD
  24. VALTREX [Concomitant]
  25. OMNISCAN [Suspect]
     Indication: NUCLEAR MAGNETIC RESONANCE IMAGING BRAIN
     Dosage: 20 ML (DAILY DOSE), ONCE, INTRAVENOUS
     Route: 042
     Dates: start: 20020812, end: 20020812
  26. HYDRALAZINE HCL [Concomitant]
  27. COUMADIN [Concomitant]
     Dosage: 0.2 MG, QAM AND QPM
  28. RENAGEL [Concomitant]
     Dosage: 800 MG, TID
  29. MAGNEVIST [Suspect]
     Indication: NUCLEAR MAGNETIC RESONANCE IMAGING
     Dosage: 20 ML, ONCE
     Route: 042
     Dates: start: 20030507, end: 20030507
  30. DIVALPROEX SODIUM [Concomitant]
  31. NIFEDIPINE [Concomitant]
     Dosage: 60 MG, UNK

REACTIONS (12)
  - ARTHRALGIA [None]
  - DRY SKIN [None]
  - OEDEMA [None]
  - BONE PAIN [None]
  - PAIN [None]
  - HYPOAESTHESIA [None]
  - PAIN IN EXTREMITY [None]
  - SKIN HYPERPIGMENTATION [None]
  - SKIN FIBROSIS [None]
  - NEPHROGENIC SYSTEMIC FIBROSIS [None]
  - MUSCULOSKELETAL PAIN [None]
  - HYPERKERATOSIS [None]
